FAERS Safety Report 7818926-5 (Version None)
Quarter: 2011Q4

REPORT INFORMATION
  Report Type: 
  Country: None (occurrence: None)
  Receive Date: 20111017
  Receipt Date: 20111017
  Transmission Date: 20120403
  Serious: No
  Sender: FDA-Public Use
  Company Number: None

PATIENT
  Sex: Male

DRUGS (2)
  1. PEG-INTRON [Suspect]
     Dosage: 120MCG QW SQ
     Route: 058
     Dates: start: 20110815, end: 20111001
  2. RIBASPHERE [Suspect]
     Dosage: 1000MG DAILY PO
     Route: 048
     Dates: start: 20110816, end: 20111001

REACTIONS (2)
  - PLATELET COUNT DECREASED [None]
  - INJECTION SITE HAEMATOMA [None]
